FAERS Safety Report 5384555-9 (Version None)
Quarter: 2007Q3

REPORT INFORMATION
  Report Type: 
  Country: None (occurrence: None)
  Receive Date: 20070711
  Receipt Date: 20060703
  Transmission Date: 20080115
  Serious: No
  Sender: FDA-Public Use
  Company Number: US-AMGEN-KDL185124

PATIENT
  Sex: Female

DRUGS (3)
  1. KINERET [Suspect]
     Indication: RHEUMATOID ARTHRITIS
     Route: 058
     Dates: start: 20050201
  2. METHOTREXATE [Concomitant]
     Route: 048
     Dates: start: 20000101
  3. PLAQUENIL [Concomitant]
     Route: 048
     Dates: start: 20000101

REACTIONS (2)
  - CONTUSION [None]
  - INJECTION SITE PAIN [None]
